FAERS Safety Report 5348037-2 (Version None)
Quarter: 2007Q2

REPORT INFORMATION
  Report Type: 
  Country: None (occurrence: None)
  Receive Date: 20070508
  Receipt Date: 20070221
  Transmission Date: 20071010
  Serious: Yes (Hospitalization)
  Sender: FDA-Public Use
  Company Number: 231390K07USA

PATIENT
  Age: 54 Year
  Sex: Female

DRUGS (11)
  1. REBIF [Suspect]
     Indication: MULTIPLE SCLEROSIS
     Dosage: 44 MCG, 3 IN 1 WEEKS, SUBCUTANEOUS
     Route: 058
     Dates: start: 20030701
  2. CLONAZEPAM [Concomitant]
  3. SYNTHROID [Concomitant]
  4. MS CONTIN [Concomitant]
  5. PERCOCET [Concomitant]
  6. RITALIN LA [Concomitant]
  7. LEXAPRO [Concomitant]
  8. ARICEPT [Concomitant]
  9. PROTONIX [Concomitant]
  10. RELAFEN [Concomitant]
  11. ZANAFLEX [Concomitant]

REACTIONS (10)
  - ABASIA [None]
  - BLOOD PRESSURE INCREASED [None]
  - HALLUCINATION [None]
  - HEPATIC ENZYME INCREASED [None]
  - INJECTION SITE BRUISING [None]
  - INJECTION SITE URTICARIA [None]
  - LOSS OF CONTROL OF LEGS [None]
  - MULTIPLE SCLEROSIS RELAPSE [None]
  - MUSCULOSKELETAL PAIN [None]
  - ROTATOR CUFF SYNDROME [None]
